FAERS Safety Report 23752339 (Version 6)
Quarter: 2024Q4

REPORT INFORMATION
  Report Type: Spontaneous
  Country: US (occurrence: US)
  Receive Date: 20240417
  Receipt Date: 20241211
  Transmission Date: 20250115
  Serious: No
  Sender: PFIZER
  Company Number: US-PFIZER INC-202400079023

PATIENT
  Age: 71 Year
  Sex: Male
  Weight: 99.773 kg

DRUGS (1)
  1. GENOTROPIN [Suspect]
     Active Substance: SOMATROPIN
     Indication: Growth hormone deficiency
     Dosage: 0.4 MG PER DAY
     Route: 058

REACTIONS (1)
  - Drug administered in wrong device [Unknown]
